FAERS Safety Report 10420919 (Version 1)
Quarter: 2014Q3

REPORT INFORMATION
  Report Type: Spontaneous
  Country: US (occurrence: None)
  Receive Date: 20140829
  Receipt Date: 20140829
  Transmission Date: 20150326
  Serious: Yes (Life-Threatening, Hospitalization)
  Sender: FDA-Public Use
  Company Number: None

PATIENT
  Age: 69 Year
  Sex: Male
  Weight: 96.8 kg

DRUGS (2)
  1. ASPIRIN. [Suspect]
     Active Substance: ASPIRIN
     Indication: CORONARY ARTERY DISEASE
     Route: 048
     Dates: start: 20070307, end: 20140727
  2. DABIGATRAN [Suspect]
     Active Substance: DABIGATRAN
     Indication: ATRIAL FLUTTER
     Route: 048
     Dates: start: 20140219, end: 20140727

REACTIONS (12)
  - Haemoglobin decreased [None]
  - Haematoma [None]
  - Gastric haemorrhage [None]
  - Respiratory disorder [None]
  - Feeling abnormal [None]
  - Renal disorder [None]
  - Dialysis [None]
  - Skin ulcer [None]
  - Sepsis [None]
  - Hypotension [None]
  - Melaena [None]
  - Groin infection [None]

NARRATIVE: CASE EVENT DATE: 20140727
